FAERS Safety Report 4271377-5 (Version None)
Quarter: 2004Q1

REPORT INFORMATION
  Report Type: 
  Country: None (occurrence: None)
  Receive Date: 20040113
  Receipt Date: 20040107
  Transmission Date: 20041129
  Serious: Yes (Hospitalization, Disabling, Other)
  Sender: FDA-Public Use
  Company Number: USA-2004-0012355

PATIENT
  Age: 30 Year
  Sex: Male

DRUGS (2)
  1. OXYCONTIN [Suspect]
     Indication: PAIN
     Dosage: 20 MG, BID, INTRA-ARTERIAL
     Route: 013
     Dates: start: 20031215, end: 20031201
  2. REMERON [Concomitant]

REACTIONS (4)
  - ARTERIAL THROMBOSIS [None]
  - DRUG ABUSER [None]
  - HAND AMPUTATION [None]
  - INTENTIONAL MISUSE [None]
